FAERS Safety Report 20334075 (Version 1)
Quarter: 2022Q1

REPORT INFORMATION
  Report Type: Spontaneous
  Country: US (occurrence: None)
  Receive Date: 20220111
  Receipt Date: 20220111
  Transmission Date: 20220423
  Serious: Yes (Hospitalization, Other)
  Sender: FDA-Public Use
  Company Number: None

PATIENT
  Age: 58 Year
  Sex: Female
  Weight: 54.4 kg

DRUGS (2)
  1. PAXLOVID [Suspect]
     Active Substance: NIRMATRELVIR\RITONAVIR
     Indication: SARS-CoV-2 test positive
     Dosage: FREQUENCY : TWICE A DAY;?
     Route: 048
     Dates: start: 20220106, end: 20220109
  2. TACROLIMUS [Concomitant]
     Active Substance: TACROLIMUS

REACTIONS (11)
  - Abdominal pain upper [None]
  - Haematemesis [None]
  - Hyponatraemia [None]
  - Hypokalaemia [None]
  - Hypochloraemia [None]
  - PCO2 increased [None]
  - Anion gap increased [None]
  - Blood urea increased [None]
  - Blood creatinine increased [None]
  - Blood glucose increased [None]
  - Drug interaction [None]

NARRATIVE: CASE EVENT DATE: 20220109
